FAERS Safety Report 23122668 (Version 1)
Quarter: 2023Q4

REPORT INFORMATION
  Report Type: Spontaneous
  Country: US (occurrence: US)
  Receive Date: 20231030
  Receipt Date: 20231030
  Transmission Date: 20240110
  Serious: No
  Sender: FDA-Public Use
  Company Number: US-JNJFOC-20231042208

PATIENT
  Sex: Female

DRUGS (2)
  1. XARELTO [Suspect]
     Active Substance: RIVAROXABAN
     Indication: Congenital coagulopathy
     Route: 048
     Dates: start: 20231011
  2. MELATONIN [Concomitant]
     Active Substance: MELATONIN

REACTIONS (5)
  - Fatigue [Unknown]
  - Nervousness [Unknown]
  - Product dose omission issue [Unknown]
  - Off label use [Unknown]
  - Sleep disorder [Unknown]
